FAERS Safety Report 10276364 (Version 1)
Quarter: 2014Q3

REPORT INFORMATION
  Report Type: Spontaneous
  Country: CA (occurrence: CA)
  Receive Date: 20140703
  Receipt Date: 20140703
  Transmission Date: 20150326
  Serious: Yes (Other)
  Sender: FDA-Public Use
  Company Number: CA-AMGEN-CANSP2014049262

PATIENT
  Age: 51 Year
  Sex: Female

DRUGS (6)
  1. NEULASTA [Suspect]
     Active Substance: PEGFILGRASTIM
     Indication: PRODUCT USED FOR UNKNOWN INDICATION
     Dosage: 10 MG/1.0ML, UNK
     Route: 065
     Dates: start: 20140611, end: 20140611
  2. NAPROXEN. [Concomitant]
     Active Substance: NAPROXEN
     Dosage: 500MG X 2 FOR 10 DAYS
  3. PANTOPRAZOLE [Concomitant]
     Active Substance: PANTOPRAZOLE SODIUM
     Dosage: UNK, FOR 14 DAYS
  4. EPIRUBICIN [Concomitant]
     Active Substance: EPIRUBICIN
     Dosage: UNK
  5. CYCLOPHOSPHAMIDE. [Concomitant]
     Active Substance: CYCLOPHOSPHAMIDE
     Dosage: UNK
  6. FLUOROURACIL 5 FU [Concomitant]
     Active Substance: FLUOROURACIL
     Dosage: UNK

REACTIONS (6)
  - Ear swelling [Unknown]
  - Thrombophlebitis [Unknown]
  - Peripheral swelling [Recovering/Resolving]
  - Rash generalised [Recovered/Resolved]
  - Erythema [Unknown]
  - Pain [Unknown]

NARRATIVE: CASE EVENT DATE: 201406
